FAERS Safety Report 21529381 (Version 1)
Quarter: 2022Q4

REPORT INFORMATION
  Report Type: Spontaneous
  Country: GB (occurrence: GB)
  Receive Date: 20221031
  Receipt Date: 20221031
  Transmission Date: 20230113
  Serious: Yes (Hospitalization)
  Sender: FDA-Public Use
  Company Number: None

PATIENT
  Age: 68 Year
  Sex: Female
  Weight: 123 kg

DRUGS (20)
  1. TRAMADOL [Suspect]
     Active Substance: TRAMADOL
     Indication: Product used for unknown indication
     Dosage: 50 MILLIGRAM
     Route: 065
     Dates: start: 20220725
  2. Adcal [Concomitant]
     Dosage: 2 DOSAGE FORM, BID
     Route: 065
     Dates: start: 20220503
  3. ALFACALCIDOL [Concomitant]
     Active Substance: ALFACALCIDOL
     Dosage: 3 DOSAGE FORM, QD
     Route: 065
     Dates: start: 20211123
  4. AMLODIPINE [Concomitant]
     Active Substance: AMLODIPINE BESYLATE
     Dosage: 1 DOSAGE FORM, QD
     Route: 065
     Dates: start: 20220718, end: 20220920
  5. ANUSOL NOS [Concomitant]
     Active Substance: BALSAM PERU\BENZYL BENZOATE\BISMUTH HYDROXIDE\BISMUTH SUBGALLATE\HYDROCORTISONE ACETATE\ZINC OXIDE
     Dosage: USE AS DIRECTED
     Route: 065
     Dates: start: 20220725, end: 20220815
  6. ATENOLOL [Concomitant]
     Active Substance: ATENOLOL
     Dosage: 1 DOSAGE FORM, AM (EACH MORNING)
     Route: 065
     Dates: start: 20220224
  7. ATORVASTATIN [Concomitant]
     Active Substance: ATORVASTATIN
     Dosage: 1 DOSAGE FORM, HS (AT NIGHT)
     Route: 065
     Dates: start: 20201127
  8. CLOPIDOGREL [Concomitant]
     Active Substance: CLOPIDOGREL BISULFATE
     Dosage: 1 DOSAGE FORM, QD
     Route: 065
     Dates: start: 20220705
  9. DOCUSATE SODIUM [Concomitant]
     Active Substance: DOCUSATE SODIUM
     Dosage: 2 DOSAGE FORM, BID (DECREASE DOSE AS)
     Route: 065
     Dates: start: 20220725, end: 20220815
  10. DOXAZOSIN [Concomitant]
     Active Substance: DOXAZOSIN MESYLATE
     Dosage: 1 DOSAGE FORM, BID (WITH 4MG TABLETS TO.)
     Route: 065
     Dates: start: 20220718
  11. FOLIC ACID [Concomitant]
     Active Substance: FOLIC ACID
     Dosage: 1 DOSAGE FORM, QD
     Route: 065
     Dates: start: 20201127
  12. HYDRALAZINE [Concomitant]
     Active Substance: HYDRALAZINE HYDROCHLORIDE
     Dosage: 1 DOSAGE FORM, BID
     Route: 065
     Dates: start: 20220224
  13. LAMICTAL [Concomitant]
     Active Substance: LAMOTRIGINE
     Dosage: 2 DOSAGE FORM, BID
     Route: 065
     Dates: start: 20201127
  14. LANSOPRAZOLE [Concomitant]
     Active Substance: LANSOPRAZOLE
     Dosage: 1 DOSAGE FORM, QD
     Route: 065
     Dates: start: 20220705
  15. ONDANSETRON [Concomitant]
     Active Substance: ONDANSETRON
     Dosage: 1 DOSAGE FORM, TID (AS REQUIRED)
     Route: 065
     Dates: start: 20220812, end: 20220817
  16. ACETAMINOPHEN [Concomitant]
     Active Substance: ACETAMINOPHEN
     Dosage: TAKE ONE OR TWO TABLETS UP TO FOUR TIMES A DAY ...
     Route: 065
     Dates: start: 20220718, end: 20220819
  17. SENNA [Concomitant]
     Active Substance: SENNA LEAF\SENNOSIDES\SENNOSIDES A AND B
     Indication: Constipation
     Dosage: UNK UNK, HS (TAKE ONE OR TWO TABLETS AT NIGHT)
     Route: 065
     Dates: start: 20220224
  18. SODIUM BICARBONATE [Concomitant]
     Active Substance: SODIUM BICARBONATE
     Dosage: 1 DOSAGE FORM, BID
     Route: 065
     Dates: start: 20220812
  19. TEGRETOL [Concomitant]
     Active Substance: CARBAMAZEPINE
     Dosage: 1 DOSAGE FORM, BID
     Route: 065
     Dates: start: 20201127
  20. MINERAL OIL\PARAFFIN [Concomitant]
     Active Substance: MINERAL OIL\PARAFFIN
     Indication: Dry skin
     Dosage: MODERATE DRY SKIN (2ND LINE): APPLY ROUTINELY T...
     Route: 065
     Dates: start: 20220802, end: 20220830

REACTIONS (1)
  - Fear of falling [Recovering/Resolving]

NARRATIVE: CASE EVENT DATE: 20220912
